FAERS Safety Report 18503340 (Version 1)
Quarter: 2020Q4

REPORT INFORMATION
  Report Type: Spontaneous
  Country: US (occurrence: US)
  Receive Date: 20201113
  Receipt Date: 20201113
  Transmission Date: 20210114
  Serious: Yes (Hospitalization, Other)
  Sender: FDA-Public Use
  Company Number: US-PURDUE-USA-2020-0165887

PATIENT
  Sex: Male

DRUGS (9)
  1. DILAUDID [Suspect]
     Active Substance: HYDROMORPHONE HYDROCHLORIDE
     Indication: BACK PAIN
  2. OXYCODONE HCL TABLETS (91-490) [Suspect]
     Active Substance: OXYCODONE HYDROCHLORIDE
     Indication: NECK PAIN
     Dosage: UNK
     Route: 048
  3. XANAX [Suspect]
     Active Substance: ALPRAZOLAM
     Indication: BACK PAIN
  4. OXYCODONE HCL TABLETS (91-490) [Suspect]
     Active Substance: OXYCODONE HYDROCHLORIDE
     Indication: BACK PAIN
  5. XANAX [Suspect]
     Active Substance: ALPRAZOLAM
     Indication: NECK PAIN
     Dosage: 2 MG, (2 IN A DAY)
     Route: 065
     Dates: start: 2010
  6. ROXICODONE [Suspect]
     Active Substance: OXYCODONE HYDROCHLORIDE
     Indication: BACK PAIN
  7. IBUPROFEN. [Suspect]
     Active Substance: IBUPROFEN
     Indication: PRODUCT USED FOR UNKNOWN INDICATION
     Dosage: UNK
     Route: 065
  8. DILAUDID [Suspect]
     Active Substance: HYDROMORPHONE HYDROCHLORIDE
     Indication: NECK PAIN
     Dosage: UNK
     Route: 048
     Dates: start: 2010
  9. ROXICODONE [Suspect]
     Active Substance: OXYCODONE HYDROCHLORIDE
     Indication: NECK PAIN
     Dosage: 30 MG, (4 IN A DAY)
     Route: 065
     Dates: start: 2010

REACTIONS (6)
  - Drug dependence [Unknown]
  - Tremor [Unknown]
  - Withdrawal syndrome [Unknown]
  - Anger [Unknown]
  - Hospitalisation [Unknown]
  - Incorrect dose administered [Unknown]
